FAERS Safety Report 18682304 (Version 1)
Quarter: 2020Q4

REPORT INFORMATION
  Report Type: Spontaneous
  Country: US (occurrence: US)
  Receive Date: 20201229
  Receipt Date: 20201229
  Transmission Date: 20210114
  Serious: No
  Sender: FDA-Public Use
  Company Number: None

PATIENT
  Age: 39 Year
  Sex: Female
  Weight: 53.1 kg

DRUGS (4)
  1. MULTI-VITAMIN [Concomitant]
     Active Substance: .ALPHA.-TOCOPHEROL ACETATE, DL-\ASCORBIC ACID\CYANOCOBALAMIN\FLUORIDE ION\FOLIC ACID\NIACIN\PYRIDOXINE\RIBOFLAVIN\THIAMINE\VITAMIN A\VITAMIN D
  2. ADDERALL IR 5MG [Concomitant]
  3. INJECTAFER [Suspect]
     Active Substance: FERRIC CARBOXYMALTOSE
     Indication: ANAEMIA
     Dates: start: 20200311, end: 20200311
  4. BENEDRYL 25MG [Concomitant]

REACTIONS (14)
  - Fatigue [None]
  - Blood phosphorus decreased [None]
  - Disturbance in attention [None]
  - Dyspnoea [None]
  - Blood albumin increased [None]
  - Anxiety [None]
  - Myalgia [None]
  - Mean platelet volume increased [None]
  - Blood chloride increased [None]
  - Globulins decreased [None]
  - Nausea [None]
  - Headache [None]
  - Weight decreased [None]
  - Muscle spasms [None]

NARRATIVE: CASE EVENT DATE: 20200318
